FAERS Safety Report 17406902 (Version 1)
Quarter: 2020Q1

REPORT INFORMATION
  Report Type: Spontaneous
  Country: US (occurrence: US)
  Receive Date: 20200211
  Receipt Date: 20200211
  Transmission Date: 20200409
  Serious: Yes (Other)
  Sender: FDA-Public Use
  Company Number: None

PATIENT
  Age: 61 Year
  Sex: Male
  Weight: 111.6 kg

DRUGS (10)
  1. COQ10 [Concomitant]
     Active Substance: UBIDECARENONE
  2. FISH OIL [Concomitant]
     Active Substance: FISH OIL
  3. VITAMIN D [Concomitant]
     Active Substance: VITAMIN D NOS
  4. CALCIPOTRIENE. [Suspect]
     Active Substance: CALCIPOTRIENE
     Indication: PSORIASIS
     Dosage: ?          QUANTITY:1 120;?
     Route: 061
     Dates: start: 20191219
  5. MULIVITAMIN [Concomitant]
  6. 81 MG ASPIRIN [Concomitant]
     Active Substance: ASPIRIN
  7. CHOLESTORAL [Concomitant]
  8. ENALAPRIL 20 MG [Suspect]
     Active Substance: ENALAPRIL
     Indication: PRODUCT USED FOR UNKNOWN INDICATION
     Route: 048
     Dates: start: 20191206, end: 20191208
  9. BP [Concomitant]
     Active Substance: CYCLOMETHICONE 5
  10. SLEEP DISORDER [Concomitant]

REACTIONS (4)
  - Drug ineffective [None]
  - Product substitution issue [None]
  - Blood pressure increased [None]
  - Psoriasis [None]

NARRATIVE: CASE EVENT DATE: 20200120
